FAERS Safety Report 5121519-4 (Version None)
Quarter: 2006Q4

REPORT INFORMATION
  Report Type: 
  Country: None (occurrence: None)
  Receive Date: 20061006
  Receipt Date: 20060927
  Transmission Date: 20070319
  Serious: Yes (Life-Threatening, Hospitalization)
  Sender: FDA-Public Use
  Company Number: GB-BRISTOL-MYERS SQUIBB COMPANY-13529110

PATIENT
  Age: 59 Year
  Sex: Female

DRUGS (10)
  1. CYCLOPHOSPHAMIDE [Suspect]
     Indication: PEMPHIGOID
     Route: 048
     Dates: start: 20060301, end: 20060530
  2. PREDNISOLONE [Suspect]
     Indication: PEMPHIGOID
     Route: 048
     Dates: start: 20060301
  3. ALENDRONATE SODIUM [Concomitant]
  4. CHLORAMPHENICOL [Concomitant]
  5. CO-AMILOFRUSE [Concomitant]
  6. DEXAMETHASONE TAB [Concomitant]
  7. FERROUS SULFATE TAB [Concomitant]
  8. GANCICLOVIR [Concomitant]
  9. GLICLAZIDE [Concomitant]
  10. PIROXICAM [Concomitant]

REACTIONS (4)
  - IMMUNOSUPPRESSION [None]
  - LYMPHOMA [None]
  - RESPIRATORY FAILURE [None]
  - RESPIRATORY TRACT INFECTION [None]
